FAERS Safety Report 15351435 (Version 2)
Quarter: 2018Q3

REPORT INFORMATION
  Report Type: Report from Study
  Country: BR (occurrence: BR)
  Receive Date: 20180905
  Receipt Date: 20180921
  Transmission Date: 20181010
  Serious: Yes (Other)
  Sender: FDA-Public Use
  Company Number: BR-ROCHE-2179817

PATIENT

DRUGS (1)
  1. ALTEPLASE. [Suspect]
     Active Substance: ALTEPLASE
     Indication: FISTULA DISCHARGE
     Route: 065

REACTIONS (4)
  - Off label use [Unknown]
  - Anastomotic fistula [Unknown]
  - Intentional product use issue [Unknown]
  - Haemorrhage [Unknown]
